FAERS Safety Report 7239144-8 (Version None)
Quarter: 2011Q1

REPORT INFORMATION
  Report Type: 
  Country: None (occurrence: None)
  Receive Date: 20110121
  Receipt Date: 20110113
  Transmission Date: 20110831
  Serious: No
  Sender: FDA-Public Use
  Company Number: US-B.I. PHARMACEUTICALS,INC./RIDGEFIELD-2010-BP-14928BP

PATIENT
  Sex: Female

DRUGS (3)
  1. SOTALOL HCL [Concomitant]
  2. PRADAXA [Suspect]
     Indication: ANTICOAGULANT THERAPY
  3. PRADAXA [Suspect]
     Indication: ATRIAL FIBRILLATION
     Dosage: 300 MG
     Dates: start: 20101118, end: 20101220

REACTIONS (2)
  - NASOPHARYNGITIS [None]
  - DYSPEPSIA [None]
